FAERS Safety Report 6130575-6 (Version None)
Quarter: 2009Q1

REPORT INFORMATION
  Report Type: 
  Country: None (occurrence: None)
  Receive Date: 20090324
  Receipt Date: 20090313
  Transmission Date: 20090719
  Serious: Yes (Hospitalization, Other)
  Sender: FDA-Public Use
  Company Number: US-ELI_LILLY_AND_COMPANY-US200903003462

PATIENT
  Sex: Male

DRUGS (5)
  1. FORTEO [Suspect]
     Indication: OSTEOPOROSIS
     Dates: start: 20090201, end: 20090101
  2. DILANTIN [Concomitant]
  3. PHENOBARBITAL TAB [Concomitant]
  4. SYNTHROID [Concomitant]
  5. ERGOCALCIFEROL [Concomitant]

REACTIONS (3)
  - FALL [None]
  - MUSCLE STRAIN [None]
  - UPPER LIMB FRACTURE [None]
